FAERS Safety Report 11377083 (Version 2)
Quarter: 2015Q3

REPORT INFORMATION
  Report Type: Report from Study
  Country: AU (occurrence: AU)
  Receive Date: 20150813
  Receipt Date: 20150817
  Transmission Date: 20151125
  Serious: Yes (Other)
  Sender: FDA-Public Use
  Company Number: AU-BAXTER-2015BAX043723

PATIENT

DRUGS (3)
  1. BAXTER SEVOFLURANE 250ML INHALATION LIQUID BOTTLE - 106647 [Suspect]
     Active Substance: SEVOFLURANE
     Indication: INDUCTION OF ANAESTHESIA
     Route: 055
  2. BAXTER SEVOFLURANE 250ML INHALATION LIQUID BOTTLE - 106647 [Suspect]
     Active Substance: SEVOFLURANE
     Indication: MAINTENANCE OF ANAESTHESIA
  3. BUPIVACAINE [Suspect]
     Active Substance: BUPIVACAINE
     Indication: NERVE BLOCK
     Route: 065

REACTIONS (2)
  - Post procedural complication [Unknown]
  - Apnoea [Unknown]
